FAERS Safety Report 6570673-6 (Version None)
Quarter: 2010Q1

REPORT INFORMATION
  Report Type: 
  Country: None (occurrence: None)
  Receive Date: 20100204
  Receipt Date: 20100126
  Transmission Date: 20100710
  Serious: Yes (Life-Threatening, Other)
  Sender: FDA-Public Use
  Company Number: A0838505A

PATIENT
  Age: 62 Year
  Sex: Male
  Weight: 95.9 kg

DRUGS (5)
  1. AVODART [Suspect]
     Indication: PROSTATOMEGALY
     Dosage: .5MG PER DAY
     Route: 048
     Dates: start: 20081107
  2. VERAPAMIL [Concomitant]
  3. VALSARTAN [Concomitant]
  4. ATORVASTATIN [Concomitant]
  5. CYANOCOBALAMIN + PYRIDOXINE HYDROCHLORIDE [Concomitant]

REACTIONS (4)
  - BREAST CANCER [None]
  - NIPPLE EXUDATE BLOODY [None]
  - OESTROGEN RECEPTOR ASSAY POSITIVE [None]
  - RADICAL MASTECTOMY [None]
